FAERS Safety Report 8289177-8 (Version None)
Quarter: 2012Q2

REPORT INFORMATION
  Report Type: 
  Country: None (occurrence: None)
  Receive Date: 20120417
  Receipt Date: 20120403
  Transmission Date: 20120825
  Serious: Yes (Hospitalization)
  Sender: FDA-Public Use
  Company Number: PHHO2009ES06257

PATIENT
  Sex: Male
  Weight: 83 kg

DRUGS (13)
  1. TACROLIMUS [Suspect]
     Dosage: 12 MG, UNK
     Route: 048
  2. ALLOPURINOL [Suspect]
     Indication: GOUT
     Dosage: 300MG
     Route: 048
     Dates: start: 20090602, end: 20090603
  3. TACROLIMUS [Suspect]
     Dosage: 1 MG, UNK
     Route: 048
     Dates: start: 20090706
  4. TACROLIMUS [Suspect]
     Dosage: 3 MG, UNK
     Route: 048
  5. PREDNISONE TAB [Concomitant]
     Dosage: 10 MG DAILY
     Route: 048
  6. EVEROLIMUS [Suspect]
     Dosage: 3 MG, UNK
     Route: 048
     Dates: end: 20090625
  7. TACROLIMUS [Suspect]
     Indication: LIVER TRANSPLANT
     Dosage: 16 MG, UNK
     Route: 048
     Dates: start: 20090407, end: 20090621
  8. TACROLIMUS [Suspect]
     Dosage: 14 MG, UNK
     Route: 048
     Dates: start: 20090427, end: 20090427
  9. OMEPRAZOLE [Concomitant]
     Indication: PROPHYLAXIS
     Dosage: UNK
     Dates: start: 20090407
  10. EVEROLIMUS [Suspect]
     Indication: LIVER TRANSPLANT
     Dosage: 2 MG, UNK
     Route: 048
     Dates: start: 20090508, end: 20090625
  11. DICLOFENAC SODIUM [Suspect]
     Dosage: 50 MG, QD
     Route: 048
     Dates: start: 20090428, end: 20090429
  12. TACROLIMUS [Suspect]
     Dosage: 2 MG, UNK
     Route: 048
     Dates: end: 20090521
  13. PREDNISONE TAB [Concomitant]
     Indication: LIVER TRANSPLANT
     Dosage: 15 MG/ DAY
     Route: 048
     Dates: start: 20090407

REACTIONS (17)
  - ANAEMIA [None]
  - LUNG INFILTRATION [None]
  - MELAENA [None]
  - RENAL FAILURE [None]
  - HAEMOGLOBIN DECREASED [None]
  - STAPHYLOCOCCAL SEPSIS [None]
  - PYREXIA [None]
  - CYTOMEGALOVIRUS INFECTION [None]
  - LARGE INTESTINAL ULCER [None]
  - GASTROINTESTINAL DISORDER [None]
  - BLOOD CREATININE INCREASED [None]
  - LUNG INFECTION [None]
  - COLITIS [None]
  - GASTROINTESTINAL HAEMORRHAGE [None]
  - DIARRHOEA [None]
  - STAPHYLOCOCCAL INFECTION [None]
  - ASPERGILLOSIS [None]
